FAERS Safety Report 14144618 (Version 5)
Quarter: 2019Q2

REPORT INFORMATION
  Report Type: Report from Study
  Country: None (occurrence: US)
  Receive Date: 20171031
  Receipt Date: 20190612
  Transmission Date: 20190711
  Serious: Yes (Hospitalization, Other)
  Sender: FDA-Public Use
  Company Number: US-ABBVIE-17K-163-2104705-00

PATIENT
  Age: 70 Year
  Sex: Female

DRUGS (7)
  1. METHOTREXATE. [Concomitant]
     Active Substance: METHOTREXATE
     Indication: PRODUCT USED FOR UNKNOWN INDICATION
     Dates: end: 2017
  2. PREDNISONE. [Concomitant]
     Active Substance: PREDNISONE
     Indication: PRODUCT USED FOR UNKNOWN INDICATION
     Route: 065
  3. ADVIL [Concomitant]
     Active Substance: IBUPROFEN
     Indication: PRODUCT USED FOR UNKNOWN INDICATION
  4. HUMIRA [Suspect]
     Active Substance: ADALIMUMAB
     Indication: RHEUMATOID ARTHRITIS
     Route: 058
     Dates: end: 2017
  5. CELEBREX [Suspect]
     Active Substance: CELECOXIB
     Indication: ARTHRALGIA
     Route: 065
     Dates: end: 2017
  6. PREDNISONE. [Concomitant]
     Active Substance: PREDNISONE
     Dosage: LOW DOSE MAINTENANCE DOSE
     Route: 065
     Dates: start: 2018
  7. TYLENOL [Concomitant]
     Active Substance: ACETAMINOPHEN
     Indication: PRODUCT USED FOR UNKNOWN INDICATION

REACTIONS (13)
  - Weight decreased [Unknown]
  - Contusion [Not Recovered/Not Resolved]
  - Neuropathy peripheral [Unknown]
  - Fall [Recovering/Resolving]
  - Post procedural complication [Unknown]
  - Cerebral haemorrhage [Recovered/Resolved]
  - Hemiplegia [Recovering/Resolving]
  - Hypoaesthesia [Not Recovered/Not Resolved]
  - Post procedural complication [Unknown]
  - Syncope [Recovering/Resolving]
  - Stress [Unknown]
  - Rheumatoid arthritis [Recovering/Resolving]
  - Brain injury [Recovered/Resolved]

NARRATIVE: CASE EVENT DATE: 2017
